FAERS Safety Report 16935733 (Version 1)
Quarter: 2019Q4

REPORT INFORMATION
  Report Type: Spontaneous
  Country: US (occurrence: US)
  Receive Date: 20191018
  Receipt Date: 20191018
  Transmission Date: 20200122
  Serious: No
  Sender: FDA-Public Use
  Company Number: US-VERTEX PHARMACEUTICALS-2019-008930

PATIENT
  Sex: Male

DRUGS (1)
  1. KALYDECO [Suspect]
     Active Substance: IVACAFTOR
     Indication: CYSTIC FIBROSIS
     Dosage: 150 MG TABLETS (FREQUENCY UNSPECIFIED)
     Route: 048
     Dates: start: 20190805

REACTIONS (2)
  - Treatment noncompliance [Not Recovered/Not Resolved]
  - Thinking abnormal [Not Recovered/Not Resolved]
